FAERS Safety Report 5387197-4 (Version None)
Quarter: 2007Q3

REPORT INFORMATION
  Report Type: 
  Country: None (occurrence: None)
  Receive Date: 20070711
  Receipt Date: 20070629
  Transmission Date: 20080115
  Serious: Yes (Other)
  Sender: FDA-Public Use
  Company Number: 2007325593

PATIENT
  Age: 34 Year
  Sex: Female
  Weight: 72.5755 kg

DRUGS (1)
  1. SUDAFED 24 HOUR TABLETS (PSEUDOEPHEDRINE) [Suspect]
     Indication: RESPIRATORY TRACT INFECTION
     Dosage: TWO TABLETS TWICE (2 IN 1 D), ORAL
     Route: 048
     Dates: start: 20070629, end: 20070629

REACTIONS (3)
  - DIZZINESS [None]
  - HEADACHE [None]
  - SPEECH DISORDER [None]
